FAERS Safety Report 19983207 (Version 2)
Quarter: 2021Q4

REPORT INFORMATION
  Report Type: Spontaneous
  Country: US (occurrence: US)
  Receive Date: 20211022
  Receipt Date: 20211122
  Transmission Date: 20220303
  Serious: Yes (Other)
  Sender: FDA-Public Use
  Company Number: US-009507513-2110USA005519

PATIENT
  Age: 52 Year
  Sex: Male

DRUGS (1)
  1. TICE BCG [Suspect]
     Active Substance: BACILLUS CALMETTE-GUERIN SUBSTRAIN TICE LIVE ANTIGEN
     Indication: Bladder cancer
     Dosage: UNK
     Route: 043
     Dates: start: 201808

REACTIONS (1)
  - Bladder cancer recurrent [Not Recovered/Not Resolved]

NARRATIVE: CASE EVENT DATE: 20190101
